FAERS Safety Report 20017173 (Version 9)
Quarter: 2022Q4

REPORT INFORMATION
  Report Type: Spontaneous
  Country: US (occurrence: US)
  Receive Date: 20211030
  Receipt Date: 20221226
  Transmission Date: 20230113
  Serious: Yes (Other)
  Sender: FDA-Public Use
  Company Number: US-NOVARTISPH-NVSC2021US247504

PATIENT
  Sex: Female

DRUGS (5)
  1. VOTRIENT [Suspect]
     Active Substance: PAZOPANIB HYDROCHLORIDE
     Indication: Skin cancer
     Dosage: 800 MG, QD
     Route: 048
     Dates: start: 202109, end: 202111
  2. VOTRIENT [Suspect]
     Active Substance: PAZOPANIB HYDROCHLORIDE
     Indication: Endometrial cancer
     Dosage: 600 MG, QD
     Route: 048
     Dates: start: 202111
  3. VOTRIENT [Suspect]
     Active Substance: PAZOPANIB HYDROCHLORIDE
     Dosage: 3 DOSAGE FORM, QD (3 TABLETS)
     Route: 048
     Dates: start: 202109
  4. VOTRIENT [Suspect]
     Active Substance: PAZOPANIB HYDROCHLORIDE
     Dosage: 600 MG, QD
     Route: 048
     Dates: start: 20210921
  5. VOTRIENT [Suspect]
     Active Substance: PAZOPANIB HYDROCHLORIDE
     Dosage: 600 MG, QD
     Route: 048
     Dates: start: 202112

REACTIONS (21)
  - Neuropathy peripheral [Unknown]
  - Thyroid hormones decreased [Unknown]
  - Memory impairment [Unknown]
  - Cardiac disorder [Unknown]
  - Contusion [Unknown]
  - Flatulence [Unknown]
  - Nausea [Unknown]
  - Dysgeusia [Unknown]
  - Abdominal pain [Unknown]
  - Muscle spasms [Unknown]
  - Chest pain [Unknown]
  - Hypertension [Unknown]
  - Asthenia [Unknown]
  - Dizziness [Unknown]
  - Hair colour changes [Unknown]
  - Skin discolouration [Unknown]
  - Pain [Unknown]
  - Chest discomfort [Unknown]
  - Diarrhoea [Not Recovered/Not Resolved]
  - Fatigue [Unknown]
  - Product use in unapproved indication [Unknown]
